FAERS Safety Report 25721735 (Version 2)
Quarter: 2025Q3

REPORT INFORMATION
  Report Type: Spontaneous
  Country: EU (occurrence: EU)
  Receive Date: 20250825
  Receipt Date: 20250901
  Transmission Date: 20251021
  Serious: Yes (Hospitalization, Other)
  Sender: AUROBINDO
  Company Number: EU-DSJP-DS-2025-156991-PT

PATIENT
  Age: 75 Year
  Sex: Female

DRUGS (1)
  1. OLMESARTAN [Suspect]
     Active Substance: OLMESARTAN
     Indication: Hypertension
     Route: 065

REACTIONS (9)
  - Gastrointestinal disorder [Recovering/Resolving]
  - Acute kidney injury [Unknown]
  - Hypokalaemia [Unknown]
  - Hypotension [Unknown]
  - Dehydration [Unknown]
  - Hypomagnesaemia [Unknown]
  - Sprue-like enteropathy [Recovered/Resolved]
  - Diarrhoea [Recovered/Resolved]
  - Abnormal loss of weight [Unknown]
